FAERS Safety Report 7898501-7 (Version None)
Quarter: 2011Q4

REPORT INFORMATION
  Report Type: 
  Country: None (occurrence: None)
  Receive Date: 20111107
  Receipt Date: 20111025
  Transmission Date: 20120403
  Serious: Yes (Other)
  Sender: FDA-Public Use
  Company Number: CA-JNJFOC-20111012779

PATIENT
  Sex: Male

DRUGS (3)
  1. REMICADE [Suspect]
     Route: 042
     Dates: start: 20110601
  2. REMICADE [Suspect]
     Indication: COLITIS ULCERATIVE
     Dosage: DOSE WAS 9 VIALS EVERY 6 WEEKS
     Route: 042
     Dates: start: 20100901
  3. REMICADE [Suspect]
     Route: 042
     Dates: start: 20110718

REACTIONS (6)
  - SWOLLEN TONGUE [None]
  - PALPITATIONS [None]
  - INFUSION RELATED REACTION [None]
  - MALAISE [None]
  - PHARYNGEAL OEDEMA [None]
  - DYSPNOEA [None]
